FAERS Safety Report 8082037-7 (Version None)
Quarter: 2012Q1

REPORT INFORMATION
  Report Type: 
  Country: None (occurrence: None)
  Receive Date: 20120130
  Receipt Date: 20120126
  Transmission Date: 20120608
  Serious: Yes (Death, Hospitalization, Other)
  Sender: FDA-Public Use
  Company Number: PHHY2012DK006948

PATIENT
  Sex: Female
  Weight: 103 kg

DRUGS (10)
  1. LITHIUM CITRATE [Suspect]
     Indication: SCHIZOAFFECTIVE DISORDER
     Route: 048
     Dates: end: 20111023
  2. ZIPRASIDONE HYDROCHLORIDE [Suspect]
     Indication: SCHIZOAFFECTIVE DISORDER
     Dosage: 40 MG, BID
     Route: 048
     Dates: end: 20111023
  3. MIRTAZAPINE [Suspect]
     Indication: SCHIZOAFFECTIVE DISORDER
     Dosage: 30 MG, QD
     Route: 048
     Dates: end: 20111023
  4. ESCITALOPRAM [Suspect]
     Indication: SCHIZOAFFECTIVE DISORDER
     Dosage: 30 MG, QD
     Route: 048
     Dates: end: 20111023
  5. K CL TAB [Concomitant]
  6. FERRO DURETTER [Concomitant]
  7. FRAGMIN [Concomitant]
  8. FUROSEMIDE [Concomitant]
  9. ALPRAZOLAM [Concomitant]
  10. AMLODIPINE [Concomitant]

REACTIONS (16)
  - DEPRESSED LEVEL OF CONSCIOUSNESS [None]
  - RENAL FAILURE ACUTE [None]
  - NEUROLEPTIC MALIGNANT SYNDROME [None]
  - PYREXIA [None]
  - HYPERVENTILATION [None]
  - LACTIC ACIDOSIS [None]
  - CARDIAC HYPERTROPHY [None]
  - HEPATIC CIRRHOSIS [None]
  - ORGAN FAILURE [None]
  - RHABDOMYOLYSIS [None]
  - FALL [None]
  - HUMERUS FRACTURE [None]
  - URINARY TRACT INFECTION [None]
  - HYPERTENSION [None]
  - DYSPNOEA [None]
  - CONSTIPATION [None]
